FAERS Safety Report 18365092 (Version 1)
Quarter: 2020Q4

REPORT INFORMATION
  Report Type: Spontaneous
  Country: US (occurrence: US)
  Receive Date: 20201009
  Receipt Date: 20201009
  Transmission Date: 20210114
  Serious: No
  Sender: FDA-Public Use
  Company Number: US-MYLANLABS-2020M1083729

PATIENT
  Sex: Male

DRUGS (1)
  1. CLONIDINE TRANSDERMAL SYSTEM [Suspect]
     Active Substance: CLONIDINE
     Indication: HYPERTENSION
     Dosage: ONCE PATCH A WEEK
     Route: 062

REACTIONS (3)
  - Therapeutic product effect decreased [Not Recovered/Not Resolved]
  - Product residue present [Not Recovered/Not Resolved]
  - Product quality issue [Not Recovered/Not Resolved]
